FAERS Safety Report 18176306 (Version 3)
Quarter: 2020Q4

REPORT INFORMATION
  Report Type: Spontaneous
  Country: US (occurrence: US)
  Receive Date: 20200820
  Receipt Date: 20201209
  Transmission Date: 20210113
  Serious: Yes (Other)
  Sender: FDA-Public Use
  Company Number: US-GILEAD-2020-0489870

PATIENT
  Age: 54 Year
  Sex: Male
  Weight: 58.96 kg

DRUGS (10)
  1. TRILEPTAL [Concomitant]
     Active Substance: OXCARBAZEPINE
  2. CLOPIDOGREL [Concomitant]
     Active Substance: CLOPIDOGREL BISULFATE
  3. COMBIVIR [Concomitant]
     Active Substance: LAMIVUDINE\ZIDOVUDINE
  4. VIDEX [Concomitant]
     Active Substance: DIDANOSINE
  5. TRAMADOL. [Concomitant]
     Active Substance: TRAMADOL
  6. GABAPENTIN. [Concomitant]
     Active Substance: GABAPENTIN
  7. BIKTARVY [Concomitant]
     Active Substance: BICTEGRAVIR SODIUM\EMTRICITABINE\TENOFOVIR ALAFENAMIDE FUMARATE
  8. EPIVIR [Concomitant]
     Active Substance: LAMIVUDINE
  9. ATORVASTATIN [Concomitant]
     Active Substance: ATORVASTATIN
  10. TRUVADA [Suspect]
     Active Substance: EMTRICITABINE\TENOFOVIR DISOPROXIL FUMARATE
     Indication: HIV INFECTION
     Dosage: UNK
     Route: 048
     Dates: start: 2009, end: 201909

REACTIONS (13)
  - Osteoporosis [Not Recovered/Not Resolved]
  - Pain in extremity [Not Recovered/Not Resolved]
  - Pain [Not Recovered/Not Resolved]
  - Emotional distress [Not Recovered/Not Resolved]
  - Anhedonia [Not Recovered/Not Resolved]
  - Bone density abnormal [Unknown]
  - Back pain [Not Recovered/Not Resolved]
  - Wrist fracture [Recovered/Resolved]
  - Decreased activity [Not Recovered/Not Resolved]
  - Mobility decreased [Not Recovered/Not Resolved]
  - Osteopenia [Unknown]
  - Deformity [Not Recovered/Not Resolved]
  - Anxiety [Not Recovered/Not Resolved]

NARRATIVE: CASE EVENT DATE: 2018
